FAERS Safety Report 7671791-1 (Version None)
Quarter: 2011Q3

REPORT INFORMATION
  Report Type: 
  Country: None (occurrence: None)
  Receive Date: 20110809
  Receipt Date: 20110727
  Transmission Date: 20111222
  Serious: Yes (Other)
  Sender: FDA-Public Use
  Company Number: US-ROCHE-765917

PATIENT
  Sex: Female
  Weight: 68 kg

DRUGS (6)
  1. ACCUTANE [Suspect]
     Route: 048
     Dates: end: 19960430
  2. ACCUTANE [Suspect]
     Indication: PSORIASIS
     Route: 048
     Dates: start: 19900101
  3. ACCUTANE [Suspect]
     Route: 048
     Dates: start: 19951101
  4. ACCUTANE [Suspect]
     Dosage: STOPPED FOR 1 WEEK.
     Route: 048
     Dates: start: 19950906, end: 19951011
  5. ACCUTANE [Suspect]
     Dosage: RESTARTED AT 40 MG QD FOR 1 WEEK FOLLOWED BY 40 MG ALTERNATING WITH 80 MG QD.
     Route: 048
     Dates: start: 19951001
  6. ERYTHROMYCIN [Concomitant]
     Route: 048
     Dates: end: 19960228

REACTIONS (7)
  - ERYTHEMA [None]
  - ACNE CYSTIC [None]
  - DIARRHOEA [None]
  - PLEURISY [None]
  - DRY SKIN [None]
  - GASTRIC DISORDER [None]
  - BRONCHITIS [None]
